FAERS Safety Report 9192715 (Version 1)
Quarter: 2013Q1

REPORT INFORMATION
  Report Type: Spontaneous
  Country: US (occurrence: US)
  Receive Date: 20130327
  Receipt Date: 20130327
  Transmission Date: 20140127
  Serious: Yes (Hospitalization, Other)
  Sender: FDA-Public Use
  Company Number: US-NAPPMUNDI-USA-2013-0100188

PATIENT
  Age: 16 Month
  Sex: Male

DRUGS (1)
  1. OXYCONTIN (NDA 22-272) [Suspect]
     Indication: ACCIDENTAL EXPOSURE TO PRODUCT BY CHILD
     Dosage: UNK
     Route: 048

REACTIONS (4)
  - Overdose [Unknown]
  - Accidental exposure to product by child [Unknown]
  - Fatigue [Unknown]
  - Abnormal behaviour [Unknown]
